FAERS Safety Report 7385097-1 (Version None)
Quarter: 2011Q1

REPORT INFORMATION
  Report Type: 
  Country: None (occurrence: None)
  Receive Date: 20110330
  Receipt Date: 20100806
  Transmission Date: 20110831
  Serious: Yes (Hospitalization, Other)
  Sender: FDA-Public Use
  Company Number: US-BAYER-200944107NA

PATIENT
  Sex: Female
  Weight: 136.5 kg

DRUGS (21)
  1. LEVSIN [Concomitant]
     Dosage: 0.125 MG, BID
     Route: 048
  2. OCELLA [Suspect]
     Indication: PREMENSTRUAL SYNDROME
     Route: 048
  3. UNCODEABLE ^UNCLASSIFIABLE^ [Concomitant]
  4. UNCODEABLE ^UNCLASSIFIABLE^ [Concomitant]
  5. CYCLOBENZAPRINE [Concomitant]
  6. YASMIN [Suspect]
     Indication: PREMENSTRUAL SYNDROME
     Dosage: 1 DF (DAILY DOSE), QD, ORAL
     Route: 048
  7. DETROL [Concomitant]
  8. AMITRIPTYLINE [Concomitant]
  9. SELENIUM [SELENIUM] [Concomitant]
     Dosage: 50 MG, CONT
  10. CYMBALTA [Concomitant]
     Indication: MIGRAINE
  11. ELAVIL [Concomitant]
     Indication: MIGRAINE
     Dosage: 100 MG, UNK
  12. CARAFATE [Concomitant]
  13. IBUPROFEN [Concomitant]
  14. ACETAMINOPHEN AND HYDROCODONE BITARTRATE [Concomitant]
  15. NEXIUM [Concomitant]
     Indication: GASTRIC DISORDER
  16. LORA TAB [Concomitant]
     Dosage: UNK UNK, PRN
  17. YAZ [Suspect]
     Indication: PREMENSTRUAL SYNDROME
     Route: 048
  18. NUVARING [Concomitant]
     Dosage: UNK
     Dates: start: 20090701, end: 20091001
  19. METOCLOPRAMID [Concomitant]
  20. TOPIRAMATE [Concomitant]
  21. UNCODEABLE ^UNCLASSIFIABLE^ [Concomitant]

REACTIONS (3)
  - AUTOIMMUNE HEPATITIS [None]
  - CHOLECYSTECTOMY [None]
  - LIVER DISORDER [None]
